FAERS Safety Report 15440098 (Version 1)
Quarter: 2018Q3

REPORT INFORMATION
  Report Type: Spontaneous
  Country: US (occurrence: US)
  Receive Date: 20180925
  Receipt Date: 20180925
  Transmission Date: 20181010
  Serious: Yes (Hospitalization)
  Sender: FDA-Public Use
  Company Number: None

PATIENT
  Age: 57 Year
  Sex: Female
  Weight: 105.75 kg

DRUGS (1)
  1. NITROFURANTOIN MACROCRYSTALS [Suspect]
     Active Substance: NITROFURANTOIN
     Indication: URINARY TRACT INFECTION
     Dosage: ?          QUANTITY:1 CAPSULE(S);?
     Route: 048
     Dates: start: 20180924, end: 20180924

REACTIONS (9)
  - Paraesthesia oral [None]
  - Speech disorder [None]
  - Urticaria [None]
  - Swelling face [None]
  - Dyspnoea [None]
  - Drug hypersensitivity [None]
  - Constipation [None]
  - Ear pain [None]
  - Pruritus [None]

NARRATIVE: CASE EVENT DATE: 20180924
